FAERS Safety Report 23212843 (Version 1)
Quarter: 2023Q4

REPORT INFORMATION
  Report Type: Spontaneous
  Country: US (occurrence: US)
  Receive Date: 20231121
  Receipt Date: 20231121
  Transmission Date: 20240110
  Serious: Yes (Hospitalization)
  Sender: FDA-Public Use
  Company Number: US-BRISTOL-MYERS SQUIBB COMPANY-2023-164796

PATIENT
  Age: 64 Year
  Sex: Male

DRUGS (2)
  1. NIVOLUMAB [Suspect]
     Active Substance: NIVOLUMAB
     Indication: Malignant neoplasm of thymus
     Dosage: SECOND DOSE OF CYCLE 1
     Dates: start: 20210217
  2. VOROLANIB [Concomitant]
     Active Substance: VOROLANIB
     Indication: Malignant neoplasm of thymus
     Dosage: SECOND DOSE OF CYCLE 1
     Dates: start: 20210217

REACTIONS (2)
  - Immune-mediated myositis [Unknown]
  - Off label use [Unknown]
